FAERS Safety Report 16119414 (Version 1)
Quarter: 2019Q1

REPORT INFORMATION
  Report Type: Spontaneous
  Country: FR (occurrence: FR)
  Receive Date: 20190326
  Receipt Date: 20190326
  Transmission Date: 20190418
  Serious: Yes (Hospitalization)
  Sender: FDA-Public Use
  Company Number: FR-PFIZER INC-2019123592

PATIENT
  Age: 31 Year
  Sex: Female

DRUGS (5)
  1. IBUPROFEN. [Suspect]
     Active Substance: IBUPROFEN
     Dosage: 4 G, UNK
     Route: 048
     Dates: start: 20180523
  2. PARACETAMOL [Suspect]
     Active Substance: ACETAMINOPHEN
     Dosage: 3 G, UNK
     Route: 048
     Dates: start: 20180523
  3. AMOXICILLIN. [Suspect]
     Active Substance: AMOXICILLIN
     Dosage: 3 G, UNK
     Route: 048
     Dates: start: 20180523
  4. CODEINE [Suspect]
     Active Substance: CODEINE
     Dosage: 150 MG, UNK
     Route: 048
     Dates: start: 20180523
  5. TRAMADOL. [Suspect]
     Active Substance: TRAMADOL
     Dosage: 150 MG, UNK
     Route: 048
     Dates: start: 20180523

REACTIONS (1)
  - Toxicity to various agents [Recovered/Resolved]

NARRATIVE: CASE EVENT DATE: 20180523
